FAERS Safety Report 21697973 (Version 3)
Quarter: 2022Q4

REPORT INFORMATION
  Report Type: Report from Study
  Country: DE (occurrence: DE)
  Receive Date: 20221208
  Receipt Date: 20221215
  Transmission Date: 20230113
  Serious: Yes (Hospitalization, Other)
  Sender: FDA-Public Use
  Company Number: DE-BRISTOL-MYERS SQUIBB COMPANY-2022-149010

PATIENT
  Age: 61 Year
  Sex: Male
  Weight: 62 kg

DRUGS (2)
  1. LENALIDOMIDE [Suspect]
     Active Substance: LENALIDOMIDE
     Indication: Adenocarcinoma pancreas
     Dosage: FREQUENCY: DAY 1-21 ONCE DAILY
     Route: 048
     Dates: start: 20221017, end: 20221204
  2. DURVALUMAB [Suspect]
     Active Substance: DURVALUMAB
     Indication: Adenocarcinoma pancreas
     Route: 042
     Dates: start: 20221017, end: 20221111

REACTIONS (2)
  - Bile duct stenosis [Not Recovered/Not Resolved]
  - Cholangitis acute [Not Recovered/Not Resolved]

NARRATIVE: CASE EVENT DATE: 20221206
